FAERS Safety Report 7260087-8 (Version None)
Quarter: 2011Q1

REPORT INFORMATION
  Report Type: 
  Country: None (occurrence: None)
  Receive Date: 20110130
  Receipt Date: 20100902
  Transmission Date: 20110831
  Serious: No
  Sender: FDA-Public Use
  Company Number: US-ABBOTT-10P-163-0669655-00

PATIENT
  Sex: Female

DRUGS (3)
  1. FOLIC ACID [Concomitant]
     Indication: RHEUMATOID ARTHRITIS
  2. METHOTREXATE [Concomitant]
     Indication: RHEUMATOID ARTHRITIS
  3. HUMIRA [Suspect]
     Indication: RHEUMATOID ARTHRITIS
     Dates: start: 20100427

REACTIONS (9)
  - OEDEMA PERIPHERAL [None]
  - FATIGUE [None]
  - ARTHRALGIA [None]
  - WEIGHT INCREASED [None]
  - NEPHROLITHIASIS [None]
  - JOINT SWELLING [None]
  - HYPOAESTHESIA [None]
  - PARAESTHESIA [None]
  - CONFUSIONAL STATE [None]
